FAERS Safety Report 7283545-9 (Version None)
Quarter: 2011Q1

REPORT INFORMATION
  Report Type: 
  Country: None (occurrence: None)
  Receive Date: 20110209
  Receipt Date: 20110202
  Transmission Date: 20110831
  Serious: Yes (Death, Hospitalization)
  Sender: FDA-Public Use
  Company Number: JP-ROCHE-704239

PATIENT
  Sex: Female

DRUGS (36)
  1. TOCILIZUMAB [Suspect]
     Route: 041
     Dates: start: 20081018, end: 20081018
  2. TOCILIZUMAB [Suspect]
     Route: 041
     Dates: start: 20081213, end: 20081213
  3. TOCILIZUMAB [Suspect]
     Route: 041
     Dates: start: 20090307, end: 20090307
  4. TOCILIZUMAB [Suspect]
     Route: 041
     Dates: start: 20090530, end: 20090530
  5. TOCILIZUMAB [Suspect]
     Route: 041
     Dates: start: 20100116, end: 20100116
  6. RIMATIL [Concomitant]
     Route: 048
     Dates: end: 20100327
  7. PREDONINE [Concomitant]
     Route: 048
     Dates: end: 20100327
  8. ASPIRIN [Concomitant]
     Dosage: FORM: ENTERIC COATING DRUG
     Route: 048
     Dates: end: 20100327
  9. TOCILIZUMAB [Suspect]
     Indication: RHEUMATOID ARTHRITIS
     Route: 041
     Dates: start: 20080830, end: 20080830
  10. TOCILIZUMAB [Suspect]
     Route: 041
     Dates: start: 20090801, end: 20090801
  11. TOCILIZUMAB [Suspect]
     Route: 041
     Dates: start: 20090829, end: 20090829
  12. TOCILIZUMAB [Suspect]
     Route: 041
     Dates: start: 20091219, end: 20091219
  13. TOCILIZUMAB [Suspect]
     Route: 041
     Dates: start: 20100213, end: 20100213
  14. PREDONINE [Concomitant]
     Route: 048
     Dates: start: 20100416, end: 20100514
  15. TEPRENONE [Concomitant]
     Dosage: DOSE FORM: PERORAL AGENT.DOSE DECREASED
     Route: 048
     Dates: end: 20090101
  16. TOCILIZUMAB [Suspect]
     Route: 041
     Dates: start: 20080927, end: 20080927
  17. TOCILIZUMAB [Suspect]
     Route: 041
     Dates: start: 20090207, end: 20090207
  18. FAROM [Concomitant]
     Dosage: FORM: PERORAL AGENT
     Route: 048
     Dates: start: 20080927, end: 20081003
  19. TOCILIZUMAB [Suspect]
     Route: 041
     Dates: start: 20090110, end: 20090110
  20. TOCILIZUMAB [Suspect]
     Route: 041
     Dates: start: 20090404, end: 20090404
  21. PREDONINE [Concomitant]
     Route: 048
     Dates: start: 20100402, end: 20100406
  22. TEPRENONE [Concomitant]
     Dosage: FORM: PERORAL AGENT
     Route: 048
     Dates: start: 20090101, end: 20100327
  23. TOCILIZUMAB [Suspect]
     Route: 041
     Dates: start: 20090704, end: 20090704
  24. TOCILIZUMAB [Suspect]
     Route: 041
     Dates: start: 20090926, end: 20090926
  25. ISCOTIN [Concomitant]
     Dosage: FORM: PERORAL AGENT
     Route: 048
     Dates: end: 20100327
  26. LANSOPRAZOLE [Concomitant]
     Dosage: DRUG NAME: LASOPRAN.
     Route: 048
     Dates: end: 20100327
  27. TOCILIZUMAB [Suspect]
     Route: 041
     Dates: start: 20091024, end: 20091024
  28. METHOTREXATE [Concomitant]
     Dosage: FORM: PERORAL AGENT, NOTE: DIVIDED INTO TWO DOSES.AMOUNT: 2
     Route: 048
     Dates: end: 20081003
  29. TOCILIZUMAB [Suspect]
     Route: 041
     Dates: start: 20091121, end: 20091121
  30. TOCILIZUMAB [Suspect]
     Route: 041
     Dates: start: 20100313, end: 20100313
  31. TOCILIZUMAB [Suspect]
     Route: 041
     Dates: start: 20081115, end: 20081115
  32. TOCILIZUMAB [Suspect]
     Route: 041
     Dates: start: 20090502, end: 20090502
  33. PREDONINE [Concomitant]
     Dosage: FORM: PERORAL AGENT
     Route: 048
  34. AZULFIDINE [Concomitant]
     Dosage: FORM: ENTERIC COATING DRUG
     Route: 048
     Dates: end: 20100327
  35. ZITHROMAX [Concomitant]
     Dosage: FORM: PERORAL AGENT
     Route: 048
     Dates: start: 20100313, end: 20100315
  36. PL [Concomitant]
     Dosage: GRANULATED POWDER.
     Route: 048
     Dates: start: 20100313, end: 20100319

REACTIONS (3)
  - URINARY TRACT INFECTION [None]
  - BILE DUCT CANCER [None]
  - CEREBRAL INFARCTION [None]
